FAERS Safety Report 21589440 (Version 2)
Quarter: 2022Q4

REPORT INFORMATION
  Report Type: Spontaneous
  Country: US (occurrence: US)
  Receive Date: 20221114
  Receipt Date: 20221116
  Transmission Date: 20230113
  Serious: No
  Sender: FDA-Public Use
  Company Number: US-PFIZER INC-202201290217

PATIENT
  Age: 72 Year
  Sex: Female
  Weight: 113.4 kg

DRUGS (3)
  1. PAXLOVID [Suspect]
     Active Substance: NIRMATRELVIR\RITONAVIR
     Indication: COVID-19 treatment
     Dosage: UNK
     Dates: start: 20220812, end: 20220817
  2. METOPROLOL [Concomitant]
     Active Substance: METOPROLOL
  3. UNITHROID [Concomitant]
     Active Substance: LEVOTHYROXINE SODIUM

REACTIONS (6)
  - Dysgeusia [Recovering/Resolving]
  - Nausea [Unknown]
  - Abdominal discomfort [Unknown]
  - Tooth disorder [Unknown]
  - Oral candidiasis [Unknown]
  - Gastrointestinal disorder [Unknown]

NARRATIVE: CASE EVENT DATE: 20220101
